FAERS Safety Report 25595852 (Version 1)
Quarter: 2025Q3

REPORT INFORMATION
  Report Type: Spontaneous
  Country: US (occurrence: US)
  Receive Date: 20250723
  Receipt Date: 20250723
  Transmission Date: 20251021
  Serious: Yes (Other)
  Sender: MERCK SHARP & DOHME LLC
  Company Number: US-009507513-2310337

PATIENT
  Age: 65 Year
  Sex: Female

DRUGS (3)
  1. BRIDION [Suspect]
     Active Substance: SUGAMMADEX SODIUM
     Dates: start: 20250710, end: 20250710
  2. PROPOFOL [Concomitant]
     Active Substance: PROPOFOL
  3. roc [Concomitant]

REACTIONS (2)
  - Apnoea [Recovered/Resolved]
  - Muscle twitching [Recovered/Resolved]

NARRATIVE: CASE EVENT DATE: 20250710
